FAERS Safety Report 13645475 (Version 3)
Quarter: 2017Q3

REPORT INFORMATION
  Report Type: Spontaneous
  Country: AU (occurrence: AU)
  Receive Date: 20170613
  Receipt Date: 20170726
  Transmission Date: 20171127
  Serious: Yes (Hospitalization, Other)
  Sender: FDA-Public Use
  Company Number: AU-ROCHE-1944919

PATIENT
  Sex: Female

DRUGS (1)
  1. VALIUM [Suspect]
     Active Substance: DIAZEPAM
     Indication: MUSCLE SPASMS
     Route: 065

REACTIONS (9)
  - Product quality issue [Unknown]
  - Small intestinal haemorrhage [Unknown]
  - Urethral haemorrhage [Unknown]
  - Intestinal polyp [Unknown]
  - Gastrointestinal haemorrhage [Unknown]
  - Abdominal pain [Unknown]
  - Candida infection [Unknown]
  - Diarrhoea [Unknown]
  - Gastritis [Unknown]
